FAERS Safety Report 17760843 (Version 2)
Quarter: 2020Q2

REPORT INFORMATION
  Report Type: Report from Study
  Country: FR (occurrence: FR)
  Receive Date: 20200508
  Receipt Date: 20200513
  Transmission Date: 20200714
  Serious: Yes (Hospitalization)
  Sender: FDA-Public Use
  Company Number: NVSC2020FR117946

PATIENT
  Age: 68 Year
  Sex: Female
  Weight: 43.4 kg

DRUGS (12)
  1. VALACICLOVIR [Concomitant]
     Active Substance: VALACYCLOVIR HYDROCHLORIDE
     Indication: ANTIVIRAL PROPHYLAXIS
     Dosage: 500 MG, QD
     Route: 048
  2. DAUNORUBICIN [Concomitant]
     Active Substance: DAUNORUBICIN
     Dosage: 95 MG, QD
     Route: 042
     Dates: start: 20200327, end: 20200327
  3. CYTARABINE. [Concomitant]
     Active Substance: CYTARABINE
     Indication: ACUTE MYELOID LEUKAEMIA
     Dosage: UNK
     Route: 065
     Dates: start: 2020
  4. DAUNORUBICIN [Concomitant]
     Active Substance: DAUNORUBICIN
     Indication: ACUTE MYELOID LEUKAEMIA
     Dosage: UNK
     Route: 065
     Dates: start: 2020
  5. CYTARABINE. [Concomitant]
     Active Substance: CYTARABINE
     Dosage: 160 MG, QD
     Route: 042
     Dates: start: 20200327, end: 20200331
  6. PANTOPRAZOLE [Concomitant]
     Active Substance: PANTOPRAZOLE
     Indication: GASTRITIS PROPHYLAXIS
     Dosage: 40 MG, QD
     Route: 048
  7. AMLODIPINE [Concomitant]
     Active Substance: AMLODIPINE BESYLATE
     Indication: HYPERTENSION
     Dosage: 5 MG, QD
     Route: 048
  8. BLINDED ELTROMBOPAG [Suspect]
     Active Substance: ELTROMBOPAG
     Indication: ACUTE MYELOID LEUKAEMIA
     Dosage: CODE NOT BROKEN
     Route: 048
     Dates: start: 20200224, end: 20200321
  9. PLACEBO [Suspect]
     Active Substance: UNSPECIFIED INGREDIENT
     Indication: ACUTE MYELOID LEUKAEMIA
     Dosage: CODE NOT BROKEN
     Route: 048
     Dates: start: 20200224, end: 20200321
  10. BLINDED NO TREATMENT RECEIVED [Suspect]
     Active Substance: INVESTIGATIONAL PRODUCT
     Indication: ACUTE MYELOID LEUKAEMIA
     Dosage: CODE NOT BROKEN
     Route: 048
     Dates: start: 20200224, end: 20200321
  11. LOMUSTINE. [Concomitant]
     Active Substance: LOMUSTINE
     Indication: ACUTE MYELOID LEUKAEMIA
     Dosage: UNK
     Route: 065
     Dates: start: 2020
  12. LOMUSTINE. [Concomitant]
     Active Substance: LOMUSTINE
     Dosage: 40 MG, QD
     Route: 048
     Dates: start: 20200327, end: 20200327

REACTIONS (2)
  - Pyrexia [Unknown]
  - Infection [Unknown]

NARRATIVE: CASE EVENT DATE: 20200412
